FAERS Safety Report 4920892-7 (Version None)
Quarter: 2006Q1

REPORT INFORMATION
  Report Type: 
  Country: None (occurrence: None)
  Receive Date: 20060223
  Receipt Date: 20050228
  Transmission Date: 20060701
  Serious: Yes (Hospitalization, Other)
  Sender: FDA-Public Use
  Company Number: US-MERCK-0503USA00266

PATIENT
  Age: 80 Year
  Sex: Male
  Weight: 100 kg

DRUGS (2)
  1. VIOXX [Suspect]
     Route: 048
     Dates: end: 20020601
  2. VIOXX [Suspect]
     Route: 048
     Dates: start: 20020701

REACTIONS (36)
  - ANAEMIA MACROCYTIC [None]
  - ANGINA PECTORIS [None]
  - AORTIC VALVE STENOSIS [None]
  - ATELECTASIS [None]
  - ATRIAL FIBRILLATION [None]
  - BLADDER CANCER [None]
  - BLOOD POTASSIUM INCREASED [None]
  - BRONCHITIS ACUTE [None]
  - BUNDLE BRANCH BLOCK RIGHT [None]
  - CARDIAC FAILURE CONGESTIVE [None]
  - CARDIOMYOPATHY [None]
  - CEREBROVASCULAR ACCIDENT [None]
  - CHEST PAIN [None]
  - CONGESTIVE CARDIOMYOPATHY [None]
  - CORONARY ARTERY DISEASE [None]
  - CORONARY ARTERY STENOSIS [None]
  - DYSLIPIDAEMIA [None]
  - DYSURIA [None]
  - HYPERCHOLESTEROLAEMIA [None]
  - HYPERTENSION [None]
  - HYPONATRAEMIA [None]
  - INFLUENZA [None]
  - MEAN CELL HAEMOGLOBIN INCREASED [None]
  - MEAN CELL VOLUME INCREASED [None]
  - MITRAL VALVE INCOMPETENCE [None]
  - MYOCARDIAL INFARCTION [None]
  - PERIPHERAL VASCULAR DISORDER [None]
  - PLEURAL EFFUSION [None]
  - PNEUMONIA [None]
  - POSTOPERATIVE THORACIC PROCEDURE COMPLICATION [None]
  - PULMONARY HYPERTENSION [None]
  - PYREXIA [None]
  - ROTATOR CUFF SYNDROME [None]
  - TRANSURETHRAL PROSTATECTOMY [None]
  - VENTRICULAR HYPERTROPHY [None]
  - WOUND INFECTION [None]
